FAERS Safety Report 18474989 (Version 2)
Quarter: 2020Q4

REPORT INFORMATION
  Report Type: Spontaneous
  Country: CN (occurrence: CN)
  Receive Date: 20201106
  Receipt Date: 20201126
  Transmission Date: 20210114
  Serious: Yes (Hospitalization, Other)
  Sender: FDA-Public Use
  Company Number: CN-SA-2020SA311544

PATIENT

DRUGS (24)
  1. LATAMOXEF [Interacting]
     Active Substance: LATAMOXEF
     Indication: INFECTION
     Dosage: 2 G, Q12H
     Dates: start: 20190310, end: 20190313
  2. GLUCOSE [Concomitant]
     Active Substance: DEXTROSE
     Dosage: 1000 ML
     Dates: start: 20190318
  3. WARFARIN SODIUM. [Interacting]
     Active Substance: WARFARIN SODIUM
     Indication: ANTICOAGULANT THERAPY
     Dosage: 1.875 MG, QN
     Dates: start: 20190310, end: 20190312
  4. TORASEMIDE [Interacting]
     Active Substance: TORSEMIDE
     Indication: POLYURIA
     Dosage: 10 MG, Q12H
  5. TORASEMIDE [Interacting]
     Active Substance: TORSEMIDE
     Dosage: 20 MG, PRN
  6. AMBROXOL [Interacting]
     Active Substance: AMBROXOL
     Indication: ANTI-INFECTIVE THERAPY
     Dosage: 90 MG, Q12H
     Dates: start: 20190310
  7. SACUBITRIL;VALSARTAN [Concomitant]
     Active Substance: SACUBITRIL\VALSARTAN
     Dosage: 50 MG, Q12H
  8. MILRINONE [Concomitant]
     Active Substance: MILRINONE
     Dosage: 10 MG, Q12H
  9. PLAVIX [Suspect]
     Active Substance: CLOPIDOGREL BISULFATE
     Dosage: 75 MG, QD
     Dates: start: 20190310, end: 20190312
  10. FUROSEMIDE. [Interacting]
     Active Substance: FUROSEMIDE
     Dosage: 40 MG, Q12H
  11. TORASEMIDE [Interacting]
     Active Substance: TORSEMIDE
     Dosage: 20 MG, QD
     Dates: start: 20190327
  12. DOPAMINE HYDROCHLORIDE. [Interacting]
     Active Substance: DOPAMINE HYDROCHLORIDE
     Dosage: 80 MG, QN
     Dates: start: 20190310, end: 20190322
  13. VITAMIN K1 [Concomitant]
     Active Substance: PHYTONADIONE
     Dosage: UNK
     Route: 030
     Dates: start: 20190312
  14. TORASEMIDE [Interacting]
     Active Substance: TORSEMIDE
     Dosage: 20 MG, BID
     Dates: start: 20190318
  15. ALBUMIN [Concomitant]
     Active Substance: ALBUMIN HUMAN
     Dosage: 10 G, QD
     Dates: start: 20190312
  16. VORICONAZOLE. [Interacting]
     Active Substance: VORICONAZOLE
     Dosage: 200 MG, Q12H
     Route: 048
     Dates: end: 20190327
  17. TORASEMIDE [Interacting]
     Active Substance: TORSEMIDE
     Dosage: 20 MG, QD
     Dates: start: 20190315
  18. DOXOFYLLINE [Concomitant]
     Active Substance: DOXOFYLLINE
     Dosage: 0.2 G, Q12H
  19. DIGOXIN. [Concomitant]
     Active Substance: DIGOXIN
     Dosage: 0.125 MG, QD
  20. PIPERACILLIN;SULBACTAM [Concomitant]
     Indication: INFECTION
     Dosage: 4.5 G, Q12H
  21. ATORVASTATIN [Interacting]
     Active Substance: ATORVASTATIN
     Dosage: 20 MG, QN
     Dates: end: 20190318
  22. MOXIFLOXACIN HYDROCHLORIDE. [Interacting]
     Active Substance: MOXIFLOXACIN HYDROCHLORIDE
     Indication: ANTI-INFECTIVE THERAPY
     Dosage: 0.4 G, QD
  23. TORASEMIDE [Interacting]
     Active Substance: TORSEMIDE
     Dosage: 20 MG, Q6H
     Dates: start: 20190321
  24. SPIRONOLACTONE. [Concomitant]
     Active Substance: SPIRONOLACTONE

REACTIONS (7)
  - Muscle discomfort [Recovered/Resolved]
  - Myalgia [Recovered/Resolved]
  - Blood creatine phosphokinase increased [Recovered/Resolved]
  - Acute kidney injury [Unknown]
  - International normalised ratio increased [Unknown]
  - Rhabdomyolysis [Recovered/Resolved]
  - Drug interaction [Recovered/Resolved]

NARRATIVE: CASE EVENT DATE: 20190318
